FAERS Safety Report 6532623-8 (Version None)
Quarter: 2010Q1

REPORT INFORMATION
  Report Type: 
  Country: None (occurrence: None)
  Receive Date: 20100111
  Receipt Date: 20091002
  Transmission Date: 20100710
  Serious: Yes (Hospitalization)
  Sender: FDA-Public Use
  Company Number: IE-CELGENEUS-229-20484-09121743

PATIENT
  Sex: Male
  Weight: 1.51 kg

DRUGS (3)
  1. INNOHEP [Suspect]
     Route: 058
     Dates: start: 20071023, end: 20071025
  2. INNOHEP [Suspect]
     Route: 058
     Dates: start: 20070705, end: 20071023
  3. DEXAMETHASONE [Concomitant]
     Route: 065
     Dates: start: 20071016, end: 20071017

REACTIONS (2)
  - DRUG EXPOSURE DURING PREGNANCY [None]
  - PREMATURE BABY [None]
